FAERS Safety Report 7493892-3 (Version None)
Quarter: 2011Q2

REPORT INFORMATION
  Report Type: 
  Country: None (occurrence: None)
  Receive Date: 20110520
  Receipt Date: 20100223
  Transmission Date: 20111010
  Serious: Yes (Life-Threatening, Hospitalization)
  Sender: FDA-Public Use
  Company Number: GB-ROCHE-687242

PATIENT
  Sex: Male
  Weight: 68 kg

DRUGS (12)
  1. PREDNISOLONE [Concomitant]
  2. PREDNISOLONE [Concomitant]
  3. COTRIM [Concomitant]
  4. VANCOMYCIN [Concomitant]
  5. PREDNISOLONE [Concomitant]
  6. ALENDRONATE SODIUM [Concomitant]
  7. MYCOPHENOLATE MOFETIL [Suspect]
     Route: 065
     Dates: start: 20081217, end: 20081220
  8. CALCICHEW D3 [Concomitant]
  9. MEROPENEM [Concomitant]
  10. MYCOPHENOLATE MOFETIL [Suspect]
     Indication: ANTI-NEUTROPHIL CYTOPLASMIC ANTIBODY POSITIVE VASCULITIS
     Dosage: DRUG: 2000 MG, FREQUENCY OF DOSING: 1000 MG BID
     Route: 065
     Dates: start: 20071030
  11. AMPHOTERICIN B [Concomitant]
  12. LANSOPRAZOLE [Concomitant]

REACTIONS (1)
  - PULMONARY HAEMORRHAGE [None]
